FAERS Safety Report 8063788-7 (Version None)
Quarter: 2012Q1

REPORT INFORMATION
  Report Type: 
  Country: None (occurrence: None)
  Receive Date: 20120123
  Receipt Date: 20120109
  Transmission Date: 20120608
  Serious: Yes (Death)
  Sender: FDA-Public Use
  Company Number: US-MERCK-1201USA02250

PATIENT
  Age: 55 Year
  Sex: Female

DRUGS (13)
  1. ALPRAZOLAM [Suspect]
     Route: 048
  2. SINGULAIR [Suspect]
     Route: 048
  3. NAPROXEN [Suspect]
     Route: 048
  4. VYTORIN [Suspect]
     Route: 048
  5. GABAPENTIN [Suspect]
     Route: 048
  6. CYCLOBENZAPRINE HCL [Suspect]
     Route: 048
  7. COCAINE [Suspect]
     Route: 048
  8. PRAVASTATIN SODIUM [Suspect]
     Route: 048
  9. HYDROCODONE [Suspect]
     Route: 048
  10. MORPHINE [Suspect]
     Route: 048
  11. PRINIVIL [Suspect]
     Route: 048
  12. CIMETIDINE [Suspect]
     Route: 048
  13. OXYCODONE HCL [Suspect]
     Route: 048

REACTIONS (1)
  - DEATH [None]
